FAERS Safety Report 17232131 (Version 14)
Quarter: 2022Q4

REPORT INFORMATION
  Report Type: Spontaneous
  Country: US (occurrence: US)
  Receive Date: 20200103
  Receipt Date: 20221228
  Transmission Date: 20230113
  Serious: Yes (Hospitalization, Other)
  Sender: FDA-Public Use
  Company Number: US-PFIZER INC-2020001486

PATIENT
  Age: 80 Year
  Sex: Female
  Weight: 69.841 kg

DRUGS (5)
  1. PREMPRO [Suspect]
     Active Substance: ESTROGENS, CONJUGATED\MEDROXYPROGESTERONE ACETATE
     Indication: Hot flush
     Dosage: 1 DF, DAILY
     Route: 048
  2. PREMPRO [Suspect]
     Active Substance: ESTROGENS, CONJUGATED\MEDROXYPROGESTERONE ACETATE
     Indication: Headache
  3. PREMPRO [Suspect]
     Active Substance: ESTROGENS, CONJUGATED\MEDROXYPROGESTERONE ACETATE
     Indication: Vulvovaginal dryness
  4. PREMPRO [Suspect]
     Active Substance: ESTROGENS, CONJUGATED\MEDROXYPROGESTERONE ACETATE
     Indication: Dry skin
  5. PREMPRO [Suspect]
     Active Substance: ESTROGENS, CONJUGATED\MEDROXYPROGESTERONE ACETATE
     Indication: Osteoporosis

REACTIONS (17)
  - Atrial fibrillation [Recovered/Resolved]
  - Cardiac disorder [Unknown]
  - Fall [Unknown]
  - Back injury [Unknown]
  - Hip arthroplasty [Unknown]
  - Walking disability [Recovering/Resolving]
  - Upper limb fracture [Unknown]
  - Impaired healing [Unknown]
  - Accident [Unknown]
  - Herpes zoster [Recovered/Resolved]
  - Wrist fracture [Recovering/Resolving]
  - Decreased immune responsiveness [Unknown]
  - Pain [Recovering/Resolving]
  - Illness [Unknown]
  - Mobility decreased [Unknown]
  - Carpal tunnel syndrome [Unknown]
  - Loss of personal independence in daily activities [Unknown]

NARRATIVE: CASE EVENT DATE: 20150101
